FAERS Safety Report 4901024-8 (Version None)
Quarter: 2006Q1

REPORT INFORMATION
  Report Type: 
  Country: None (occurrence: None)
  Receive Date: 20060113
  Receipt Date: 20050915
  Transmission Date: 20060701
  Serious: No
  Sender: FDA-Public Use
  Company Number: 2005SP001022

PATIENT
  Age: 71 Year
  Sex: Female
  Weight: 68.0396 kg

DRUGS (10)
  1. LUNESTA [Suspect]
     Indication: INSOMNIA
     Dosage: 2 MG;HS;ORAL      1 MG;HS;ORAL
     Route: 048
     Dates: start: 20050505, end: 20050101
  2. LUNESTA [Suspect]
     Indication: INSOMNIA
     Dosage: 2 MG;HS;ORAL      1 MG;HS;ORAL
     Route: 048
     Dates: start: 20050101
  3. ATIVAN [Concomitant]
  4. ULTRAM [Concomitant]
  5. ATORVASTATIN CALCIUM [Concomitant]
  6. AMLODIPINE BESYLATE [Concomitant]
  7. GLUCOPHAGE [Concomitant]
  8. PRILOSEC [Concomitant]
  9. BENADRYL [Concomitant]
  10. NIACINAMIDE [Concomitant]

REACTIONS (3)
  - CHEST DISCOMFORT [None]
  - NIGHTMARE [None]
  - PALPITATIONS [None]
